FAERS Safety Report 4642253-0 (Version None)
Quarter: 2005Q2

REPORT INFORMATION
  Report Type: 
  Country: None (occurrence: None)
  Receive Date: 20050422
  Receipt Date: 20041108
  Transmission Date: 20051028
  Serious: Yes (Hospitalization)
  Sender: FDA-Public Use
  Company Number: JP-BOEHRINGER INGELHEIM PHARMACEUTICALS, INC.-2004-BP-12001NB

PATIENT
  Sex: Male
  Weight: 60 kg

DRUGS (16)
  1. MICARDIS [Suspect]
     Indication: HYPERTENSION
     Route: 048
     Dates: start: 20040527, end: 20041012
  2. AMARYL [Concomitant]
     Route: 048
     Dates: start: 20031121, end: 20041027
  3. PREDONINE [Concomitant]
     Indication: RHEUMATOID ARTHRITIS
     Route: 048
     Dates: start: 20030202
  4. FOLIAMIN [Concomitant]
     Route: 048
     Dates: start: 20040601, end: 20041022
  5. RHEUMATREX [Concomitant]
     Route: 048
     Dates: start: 20031203
  6. SHAKUYAKU-KANZO-TO [Concomitant]
     Route: 048
     Dates: start: 20031203
  7. NAUZELIN [Concomitant]
     Route: 048
     Dates: start: 20031203
  8. GASTER D [Concomitant]
     Route: 048
     Dates: start: 20031203
  9. MUCOSTA [Concomitant]
     Route: 048
     Dates: start: 20031220
  10. YODEL S [Concomitant]
     Route: 048
     Dates: start: 20031220
  11. SELTOUCH [Concomitant]
     Route: 062
     Dates: start: 20040206
  12. CRAVIT [Concomitant]
     Route: 048
     Dates: start: 20040926, end: 20040930
  13. LONGES [Concomitant]
     Route: 048
     Dates: start: 20040423, end: 20040527
  14. MEVALOTIN [Concomitant]
     Route: 048
  15. BASEN [Concomitant]
     Route: 048
  16. BLOPRESS [Concomitant]
     Route: 048
     Dates: start: 20041012, end: 20041017

REACTIONS (2)
  - PNEUMONIA [None]
  - PYREXIA [None]
